FAERS Safety Report 6975615-7 (Version None)
Quarter: 2010Q3

REPORT INFORMATION
  Report Type: 
  Country: None (occurrence: None)
  Receive Date: 20100910
  Receipt Date: 20100831
  Transmission Date: 20110219
  Serious: Yes (Hospitalization, Other)
  Sender: FDA-Public Use
  Company Number: US-JNJFOC-20100607621

PATIENT
  Sex: Male

DRUGS (2)
  1. LEVAQUIN [Suspect]
     Indication: PSEUDOMONAS INFECTION
     Route: 048
  2. LEVAQUIN [Suspect]
     Indication: INFECTION PROPHYLAXIS
     Route: 048

REACTIONS (20)
  - ABDOMINAL PAIN [None]
  - BACK PAIN [None]
  - CHEST PAIN [None]
  - CHOKING [None]
  - DECREASED APPETITE [None]
  - GINGIVAL PAIN [None]
  - INSOMNIA [None]
  - LEUKOPENIA [None]
  - MALAISE [None]
  - NAUSEA [None]
  - NEUROTOXICITY [None]
  - PALPITATIONS [None]
  - PARAESTHESIA [None]
  - PRURITUS [None]
  - SKIN BURNING SENSATION [None]
  - TENDON DISORDER [None]
  - THERAPEUTIC AGENT TOXICITY [None]
  - TINNITUS [None]
  - TOOTHACHE [None]
  - WEIGHT DECREASED [None]
